FAERS Safety Report 10376745 (Version 5)
Quarter: 2015Q1

REPORT INFORMATION
  Report Type: Report from Study
  Country: ZA (occurrence: ZA)
  Receive Date: 20140811
  Receipt Date: 20150206
  Transmission Date: 20150720
  Serious: Yes (Congenital Anomaly, Other)
  Sender: FDA-Public Use
  Company Number: ZA-B.I. PHARMACEUTICALS,INC./RIDGEFIELD-2014-BI-36226BI

PATIENT
  Sex: Male
  Weight: 2.18 kg

DRUGS (5)
  1. VIRAMUNE [Suspect]
     Active Substance: NEVIRAPINE
     Indication: EXPOSURE DURING PREGNANCY
     Route: 064
     Dates: start: 20050501, end: 20140408
  2. STAVUDINE. [Concomitant]
     Active Substance: STAVUDINE
     Indication: EXPOSURE DURING PREGNANCY
     Route: 064
     Dates: start: 20050501, end: 20140408
  3. LOPINAVIR+RITONAVIR [Concomitant]
     Active Substance: LOPINAVIR\RITONAVIR
     Indication: EXPOSURE DURING PREGNANCY
     Route: 064
     Dates: start: 20140408
  4. TENOFOVIR DISOPROXIL FUMARATE [Concomitant]
     Active Substance: TENOFOVIR DISOPROXIL FUMARATE
     Indication: EXPOSURE DURING PREGNANCY
     Route: 064
     Dates: start: 20140408
  5. LAMIVUDINE. [Concomitant]
     Active Substance: LAMIVUDINE
     Indication: EXPOSURE DURING PREGNANCY
     Route: 064
     Dates: start: 20050501

REACTIONS (7)
  - Congenital nose malformation [Unknown]
  - Trisomy 21 [Unknown]
  - Dysmorphism [Unknown]
  - Pericardial effusion [Unknown]
  - Foot deformity [Unknown]
  - Low set ears [Unknown]
  - Low birth weight baby [Unknown]
